FAERS Safety Report 8785355 (Version 2)
Quarter: 2012Q4

REPORT INFORMATION
  Report Type: 
  Country: US (occurrence: US)
  Receive Date: 20120914
  Receipt Date: 20121023
  Transmission Date: 20130627
  Serious: No
  Sender: FDA-Public Use
  Company Number: US-PFIZER INC-2012224374

PATIENT
  Age: 82 Year
  Sex: Male
  Weight: 72.56 kg

DRUGS (4)
  1. FLAGYL [Suspect]
     Indication: DIVERTICULITIS
     Dosage: UNK, once daily
     Route: 048
     Dates: start: 20120806, end: 20120822
  2. BYSTOLIC [Concomitant]
     Indication: HYPERTENSION
     Dosage: UNK
  3. UROXATRAL [Concomitant]
     Indication: PROSTATOMEGALY
     Dosage: UNK
  4. LEVOFLOXACIN [Concomitant]
     Indication: DIVERTICULITIS
     Dosage: UNK
     Dates: start: 20120806, end: 20120822

REACTIONS (3)
  - White blood cell count increased [Unknown]
  - Dysgeusia [Not Recovered/Not Resolved]
  - Dry mouth [Not Recovered/Not Resolved]
